FAERS Safety Report 25816190 (Version 6)
Quarter: 2025Q4

REPORT INFORMATION
  Report Type: Spontaneous
  Country: CA (occurrence: CA)
  Receive Date: 20250918
  Receipt Date: 20251208
  Transmission Date: 20260117
  Serious: Yes (Other)
  Sender: ASTELLAS
  Company Number: CA-PFIZER INC-PV202500079876

PATIENT
  Age: 82 Year
  Sex: Male
  Weight: 72 kg

DRUGS (17)
  1. PADCEV [Suspect]
     Active Substance: ENFORTUMAB VEDOTIN-EJFV
     Indication: Transitional cell carcinoma metastatic
     Dosage: 90 MG, CYCLIC (D1 AND D8 OF 21-DAY CYCLE)?POWDER FOR SOLUTION FOR INFUSION
     Route: 042
     Dates: start: 20250702, end: 20250702
  2. PADCEV [Suspect]
     Active Substance: ENFORTUMAB VEDOTIN-EJFV
     Dosage: 90 MG, CYCLIC (D1 AND D8 OF 21-DAY CYCLE)?POWDER FOR SOLUTION FOR INFUSION
     Route: 042
     Dates: start: 20250709, end: 20250709
  3. PADCEV [Suspect]
     Active Substance: ENFORTUMAB VEDOTIN-EJFV
     Dosage: 90 MG, CYCLIC (DAY 1 AND DAY 8 OF 21-DAY CYCLE (CYCLE: 2, INFUSION 3))?POWDER FOR SOLUTION FOR INFUS
     Route: 042
     Dates: start: 20250723, end: 20250723
  4. PADCEV [Suspect]
     Active Substance: ENFORTUMAB VEDOTIN-EJFV
     Dosage: 90 MG, CYCLIC, DAY 1 AND DAY 8 OF 21-DAY CYCLE?POWDER FOR SOLUTION FOR INFUSION
     Route: 042
     Dates: start: 20250730, end: 20250730
  5. PADCEV [Suspect]
     Active Substance: ENFORTUMAB VEDOTIN-EJFV
     Dosage: 90 MG, CYCLIC, DAY 1 AND DAY 8 OF 21-DAY CYCLE?POWDER FOR SOLUTION FOR INFUSION
     Route: 042
     Dates: start: 20250813, end: 20250813
  6. PADCEV [Suspect]
     Active Substance: ENFORTUMAB VEDOTIN-EJFV
     Dosage: 90 MG, CYCLIC, DAY 1 AND DAY 8 OF 21-DAY CYCLE?POWDER FOR SOLUTION FOR INFUSION
     Route: 042
     Dates: start: 20250820
  7. PADCEV [Suspect]
     Active Substance: ENFORTUMAB VEDOTIN-EJFV
     Dosage: 90 MG, DAY 1 AND DAY 8 OF 21-DAY CYCLE?POWDER FOR SOLUTION FOR INFUSION
     Route: 042
     Dates: start: 20250903
  8. PADCEV [Suspect]
     Active Substance: ENFORTUMAB VEDOTIN-EJFV
     Dosage: 90 MG, DAY 1 AND DAY 8 OF 21-DAY CYCLE?POWDER FOR SOLUTION FOR INFUSION
     Route: 042
     Dates: start: 20250910
  9. PADCEV [Suspect]
     Active Substance: ENFORTUMAB VEDOTIN-EJFV
     Dosage: 90 MG, DAY 1 AND DAY 8 OF 21-DAY CYCLE?POWDER FOR SOLUTION FOR INFUSION
     Route: 042
     Dates: start: 20250924
  10. PADCEV [Suspect]
     Active Substance: ENFORTUMAB VEDOTIN-EJFV
     Dosage: 91 MG IV (DAY 1 AND DAY 8 OF 21-DAY CYCLE, CYCLE: 5, INFUSION# 9) ?POWDER FOR SOLUTION FOR INFUSION
     Route: 042
     Dates: start: 20251001
  11. PADCEV [Suspect]
     Active Substance: ENFORTUMAB VEDOTIN-EJFV
     Dosage: 90 MG, D1 AND D8?POWDER FOR SOLUTION FOR INFUSION
     Route: 042
     Dates: start: 20251015
  12. PADCEV [Suspect]
     Active Substance: ENFORTUMAB VEDOTIN-EJFV
     Dosage: 90 MG, D1 AND D8 OF 21 DAY CYCLE?POWDER FOR SOLUTION FOR INFUSION
     Route: 042
     Dates: start: 20251022
  13. KEYTRUDA [Concomitant]
     Active Substance: PEMBROLIZUMAB
     Indication: Product used for unknown indication
     Dosage: UNK?ONGOING
     Route: 065
  14. PANTALOC [Concomitant]
     Indication: Product used for unknown indication
     Dosage: UNK
     Route: 065
  15. POLYETHYLENE GLYCOL 3350 [Concomitant]
     Active Substance: POLYETHYLENE GLYCOL 3350
     Indication: Product used for unknown indication
     Dosage: UNK
     Route: 065
  16. CHOLECALCIFEROL [Concomitant]
     Active Substance: CHOLECALCIFEROL
     Indication: Product used for unknown indication
     Dosage: UNK
     Route: 065
  17. APIXABAN [Concomitant]
     Active Substance: APIXABAN
     Indication: Product used for unknown indication
     Dosage: 2.5MG, 2X/DAY
     Route: 048

REACTIONS (14)
  - Syncope [Recovered/Resolved]
  - Fall [Recovered/Resolved]
  - Joint injury [Recovered/Resolved]
  - Infusion site erythema [Recovering/Resolving]
  - Infusion site scab [Unknown]
  - Skin irritation [Not Recovered/Not Resolved]
  - Pruritus [Not Recovered/Not Resolved]
  - Blood pressure diastolic decreased [Unknown]
  - Infusion site haemorrhage [Recovered/Resolved]
  - Eye pain [Recovered/Resolved]
  - Exposure via skin contact [Unknown]
  - Skin abrasion [Recovering/Resolving]
  - Accidental exposure to product [Unknown]
  - Incorrect dose administered [Unknown]

NARRATIVE: CASE EVENT DATE: 20250101
